FAERS Safety Report 6918293-5 (Version None)
Quarter: 2010Q3

REPORT INFORMATION
  Report Type: 
  Country: None (occurrence: None)
  Receive Date: 20100811
  Receipt Date: 20100802
  Transmission Date: 20110219
  Serious: Yes (Hospitalization)
  Sender: FDA-Public Use
  Company Number: US-BIOGENIDEC-2010BI026451

PATIENT
  Age: 29 Year
  Sex: Female

DRUGS (3)
  1. TYSABRI [Suspect]
     Indication: MULTIPLE SCLEROSIS
     Route: 042
     Dates: start: 20070418, end: 20070517
  2. TYSABRI [Suspect]
     Route: 042
     Dates: start: 20081017
  3. AVONEX [Concomitant]
     Indication: MULTIPLE SCLEROSIS
     Route: 030

REACTIONS (7)
  - CHEST PAIN [None]
  - COLD SWEAT [None]
  - CYSTITIS [None]
  - HEADACHE [None]
  - OVARIAN INFECTION [None]
  - PYREXIA [None]
  - SALPINGITIS [None]
